FAERS Safety Report 8125372-6 (Version None)
Quarter: 2012Q1

REPORT INFORMATION
  Report Type: 
  Country: None (occurrence: None)
  Receive Date: 20120209
  Receipt Date: 20120131
  Transmission Date: 20120608
  Serious: Yes (Hospitalization)
  Sender: FDA-Public Use
  Company Number: FR-GLAXOSMITHKLINE-B0778320A

PATIENT
  Sex: Female
  Weight: 66 kg

DRUGS (3)
  1. IRBESARTAN [Concomitant]
     Dosage: 1UNIT PER DAY
     Route: 048
     Dates: start: 20080101
  2. XALATAN [Concomitant]
     Dosage: 1DROP PER DAY
     Route: 047
  3. ARIXTRA [Suspect]
     Indication: DEEP VEIN THROMBOSIS
     Dosage: 1UNIT PER DAY
     Route: 058
     Dates: start: 20110902, end: 20110914

REACTIONS (2)
  - HAEMATOMA [None]
  - ANAEMIA [None]
